FAERS Safety Report 24055809 (Version 1)
Quarter: 2024Q3

REPORT INFORMATION
  Report Type: Spontaneous
  Country: US (occurrence: None)
  Receive Date: 20240703
  Receipt Date: 20240703
  Transmission Date: 20241016
  Serious: No
  Sender: Public
  Company Number: None

PATIENT
  Age: 44 Year
  Sex: Male
  Weight: 83.25 kg

DRUGS (5)
  1. VELSIPITY [Suspect]
     Active Substance: ETRASIMOD ARGININE
     Indication: Colitis ulcerative
     Dates: start: 20240625, end: 20240703
  2. SULFASALAZINE [Concomitant]
  3. mesalamine suppostories [Concomitant]
  4. FOLIC ACID [Concomitant]
     Active Substance: FOLIC ACID
  5. ZINC [Concomitant]
     Active Substance: ZINC

REACTIONS (2)
  - Fatigue [None]
  - Bradycardia [None]

NARRATIVE: CASE EVENT DATE: 20240625
